FAERS Safety Report 12357851 (Version 3)
Quarter: 2016Q2

REPORT INFORMATION
  Report Type: Spontaneous
  Country: US (occurrence: US)
  Receive Date: 20160512
  Receipt Date: 20160610
  Transmission Date: 20160815
  Serious: Yes (Death, Life-Threatening, Hospitalization)
  Sender: FDA-Public Use
  Company Number: US-VIFOR (INTERNATIONAL) INC.-VIT-2016-02201

PATIENT
  Age: 71 Year
  Sex: Female
  Weight: 78 kg

DRUGS (8)
  1. CALCIUM [Concomitant]
     Active Substance: CALCIUM
  2. ESTRADIOL. [Concomitant]
     Active Substance: ESTRADIOL
  3. FUROSEMIDE. [Concomitant]
     Active Substance: FUROSEMIDE
  4. MIRCERA [Suspect]
     Active Substance: METHOXY POLYETHYLENE GLYCOL-EPOETIN BETA
     Indication: NEPHROGENIC ANAEMIA
     Route: 040
     Dates: start: 20160425
  5. OMEPRAZOLE. [Concomitant]
     Active Substance: OMEPRAZOLE
  6. ATENOLOL. [Concomitant]
     Active Substance: ATENOLOL
  7. AMLODIPINE [Concomitant]
     Active Substance: AMLODIPINE BESYLATE
  8. EFFEXOR [Concomitant]
     Active Substance: VENLAFAXINE HYDROCHLORIDE

REACTIONS (17)
  - Cardiac tamponade [Unknown]
  - Rhonchi [Unknown]
  - Rales [Unknown]
  - Hypotension [Unknown]
  - Cardiomegaly [Unknown]
  - Sensory disturbance [Unknown]
  - Cardio-respiratory arrest [Unknown]
  - Pulmonary oedema [Unknown]
  - Myocardial infarction [Unknown]
  - Muscle twitching [Unknown]
  - Unresponsive to stimuli [Unknown]
  - Ischaemia [Unknown]
  - Pulse absent [Unknown]
  - Cardiac arrest [Fatal]
  - Wheezing [Unknown]
  - Bradycardia [Unknown]
  - Sepsis [Unknown]

NARRATIVE: CASE EVENT DATE: 20160425
